FAERS Safety Report 5948359-8 (Version None)
Quarter: 2008Q4

REPORT INFORMATION
  Report Type: 
  Country: None (occurrence: None)
  Receive Date: 20081111
  Receipt Date: 20081103
  Transmission Date: 20090506
  Serious: Yes (Other)
  Sender: FDA-Public Use
  Company Number: US-AVENTIS-200817552US

PATIENT
  Sex: Male

DRUGS (8)
  1. KETEK [Suspect]
     Indication: CHRONIC SINUSITIS
     Dates: start: 20050128
  2. BACTRIM [Concomitant]
     Indication: SINUSITIS
     Dosage: DOSE: UNK
     Dates: start: 20050101, end: 20050101
  3. BIAXIN [Concomitant]
     Indication: SINUSITIS
     Dosage: DOSE: UNK
     Dates: start: 20050101, end: 20050101
  4. MEDROL [Concomitant]
     Dosage: DOSE: UNK
     Dates: start: 20050128
  5. ZITHROMAX [Concomitant]
     Dosage: DOSE: UNK
     Dates: start: 20050314
  6. ZITHROMAX [Concomitant]
     Dosage: DOSE: UNK
     Dates: start: 20050314
  7. ACIPHEX [Concomitant]
     Dosage: DOSE: UNK
     Dates: end: 20050322
  8. LIPITOR [Concomitant]
     Dosage: DOSE: UNK
     Dates: end: 20050318

REACTIONS (7)
  - ABDOMINAL PAIN UPPER [None]
  - HEADACHE [None]
  - HEPATITIS [None]
  - LIVER FUNCTION TEST ABNORMAL [None]
  - NAUSEA [None]
  - PAIN [None]
  - PYREXIA [None]
